FAERS Safety Report 8748620 (Version 2)
Quarter: 2012Q4

REPORT INFORMATION
  Report Type: 
  Country: US (occurrence: US)
  Receive Date: 20120827
  Receipt Date: 20120912
  Transmission Date: 20130627
  Serious: Yes (Other)
  Sender: FDA-Public Use
  Company Number: US-ROCHE-1106981

PATIENT
  Sex: Female
  Weight: 103.97 kg

DRUGS (12)
  1. OMALIZUMAB [Suspect]
     Indication: ASTHMA
     Route: 058
     Dates: start: 20111012
  2. ALBUTEROL [Suspect]
     Indication: ASTHMA
     Dosage: started more than 10 years ago
     Route: 055
  3. ADVAIR [Concomitant]
     Indication: ASTHMA
     Dosage: 250/50 started more than 5 years ago
     Route: 055
  4. HUMALOG [Concomitant]
     Indication: DIABETES MELLITUS
     Dosage: varies
     Route: 058
  5. SINGULAIR [Concomitant]
     Indication: ASTHMA
     Dosage: started more than 5 years ago
     Route: 048
  6. FLONASE [Concomitant]
     Indication: RHINITIS ALLERGIC
     Dosage: started more than 5 years ago
     Route: 045
  7. DULERA [Concomitant]
     Indication: ASTHMA
     Dosage: 200 inhalation
     Route: 065
     Dates: start: 201109, end: 201110
  8. PREDNISONE [Concomitant]
     Indication: ASTHMA
     Dosage: 5-10 mg daily
     Route: 048
  9. ZITHROMAX Z-PAK [Concomitant]
     Indication: SINUSITIS
     Route: 048
     Dates: start: 20120104, end: 20120108
  10. BIAXIN (UNITED STATES) [Concomitant]
     Indication: SINUSITIS
     Dosage: 500
     Route: 048
     Dates: start: 20120118, end: 20120201
  11. DIFLUCAN [Concomitant]
     Dosage: Daily 1
     Route: 048
     Dates: start: 20120104
  12. CYMBALTA [Concomitant]
     Indication: NEUROPATHY PERIPHERAL
     Dosage: more than 2 years
     Route: 048

REACTIONS (1)
  - Rheumatoid arthritis [Not Recovered/Not Resolved]
